FAERS Safety Report 5684578-6 (Version None)
Quarter: 2008Q1

REPORT INFORMATION
  Report Type: 
  Country: None (occurrence: None)
  Receive Date: 20080328
  Receipt Date: 20070307
  Transmission Date: 20080703
  Serious: Yes (Life-Threatening, Hospitalization)
  Sender: FDA-Public Use
  Company Number: US-BRISTOL-MYERS SQUIBB COMPANY-13705124

PATIENT
  Age: 56 Year
  Sex: Male

DRUGS (4)
  1. ERBITUX [Suspect]
     Indication: COLORECTAL CANCER METASTATIC
     Route: 042
     Dates: start: 20070220
  2. OXYGEN [Concomitant]
  3. BENADRYL [Concomitant]
  4. DECADRON [Concomitant]

REACTIONS (2)
  - RESPIRATORY ARREST [None]
  - SYNCOPE [None]
